FAERS Safety Report 14455775 (Version 2)
Quarter: 2018Q1

REPORT INFORMATION
  Report Type: Report from Study
  Country: None (occurrence: ES)
  Receive Date: 20180130
  Receipt Date: 20180328
  Transmission Date: 20180509
  Serious: Yes (Other)
  Sender: FDA-Public Use
  Company Number: ES-ABBVIE-18K-144-2226422-00

PATIENT
  Age: 69 Year
  Sex: Male

DRUGS (5)
  1. DUODOPA [Suspect]
     Active Substance: CARBIDOPA\LEVODOPA
     Dosage: DUODOPA DOSE DECREASE
     Route: 050
     Dates: start: 201711
  2. QUETIAPINE. [Suspect]
     Active Substance: QUETIAPINE
     Dosage: IN THE NIGHT
     Route: 065
  3. DUODOPA [Suspect]
     Active Substance: CARBIDOPA\LEVODOPA
     Indication: PARKINSON^S DISEASE
     Route: 050
     Dates: start: 20151204
  4. QUETIAPINE. [Suspect]
     Active Substance: QUETIAPINE
     Indication: PRODUCT USED FOR UNKNOWN INDICATION
     Route: 065
     Dates: end: 2018
  5. QUETIAPINE. [Suspect]
     Active Substance: QUETIAPINE
     Dosage: IN THE MORNING
     Route: 065

REACTIONS (4)
  - Syncope [Recovered/Resolved]
  - Hypotension [Recovered/Resolved]
  - Fatigue [Recovering/Resolving]
  - On and off phenomenon [Recovered/Resolved]

NARRATIVE: CASE EVENT DATE: 201711
